FAERS Safety Report 4277886-7 (Version None)
Quarter: 2004Q1

REPORT INFORMATION
  Report Type: 
  Country: None (occurrence: None)
  Receive Date: 20040121
  Receipt Date: 20040106
  Transmission Date: 20041129
  Serious: Yes (Hospitalization)
  Sender: FDA-Public Use
  Company Number: FR_040103376

PATIENT
  Age: 50 Year
  Sex: Male

DRUGS (2)
  1. XIGRIS [Suspect]
     Indication: SEPTIC SHOCK
     Dates: start: 20031231
  2. HEPARIN [Concomitant]

REACTIONS (5)
  - FIBRIN D DIMER [None]
  - LEUKOPENIA [None]
  - PROTHROMBIN TIME [None]
  - PYREXIA [None]
  - THROMBOCYTOPENIA [None]
